FAERS Safety Report 4679374-2 (Version None)
Quarter: 2005Q2

REPORT INFORMATION
  Report Type: 
  Country: None (occurrence: None)
  Receive Date: 20050602
  Receipt Date: 20050429
  Transmission Date: 20051028
  Serious: Yes (Other)
  Sender: FDA-Public Use
  Company Number: NZ-GLAXOSMITHKLINE-B0380129A

PATIENT
  Age: 11 Year
  Sex: Female
  Weight: 41 kg

DRUGS (2)
  1. SEREVENT [Suspect]
     Indication: ASTHMA
     Dosage: 25MCG TWICE PER DAY
     Route: 055
     Dates: start: 20041101, end: 20041101
  2. FLIXOTIDE [Suspect]
     Route: 065

REACTIONS (4)
  - COUGH [None]
  - INHALATION THERAPY [None]
  - THROAT IRRITATION [None]
  - WHEEZING [None]
